FAERS Safety Report 23681930 (Version 3)
Quarter: 2024Q2

REPORT INFORMATION
  Report Type: Report from Study
  Country: US (occurrence: US)
  Receive Date: 20240328
  Receipt Date: 20240422
  Transmission Date: 20240716
  Serious: Yes (Other)
  Sender: FDA-Public Use
  Company Number: US-ARGENX-2024-ARGX-US001910

PATIENT

DRUGS (1)
  1. VYVGART HYTRULO [Suspect]
     Active Substance: EFGARTIGIMOD ALFA\HYALURONIDASE-QVFC
     Indication: Myasthenia gravis
     Dosage: UNK
     Route: 058
     Dates: start: 20240304, end: 20240311

REACTIONS (5)
  - Cataract [Unknown]
  - Injection site rash [Recovering/Resolving]
  - Injection site reaction [Unknown]
  - Influenza [Unknown]
  - Drug interaction [Unknown]

NARRATIVE: CASE EVENT DATE: 20240304
